FAERS Safety Report 8516264-9 (Version None)
Quarter: 2012Q3

REPORT INFORMATION
  Report Type: 
  Country: None (occurrence: None)
  Receive Date: 20120717
  Receipt Date: 20120708
  Transmission Date: 20120928
  Serious: Yes (Other)
  Sender: FDA-Public Use
  Company Number: CHPA2012AR015137

PATIENT
  Sex: Male

DRUGS (1)
  1. OTRIVINA [Suspect]
     Indication: INSOMNIA
     Dosage: 1 DF, TID
     Route: 045
     Dates: start: 20100101

REACTIONS (5)
  - NASAL OBSTRUCTION [None]
  - DRUG DEPENDENCE [None]
  - DYSPNOEA [None]
  - DISEASE RECURRENCE [None]
  - OFF LABEL USE [None]
